FAERS Safety Report 7915061-2 (Version None)
Quarter: 2011Q4

REPORT INFORMATION
  Report Type: 
  Country: None (occurrence: None)
  Receive Date: 20111115
  Receipt Date: 20111110
  Transmission Date: 20120403
  Serious: Yes (Hospitalization)
  Sender: FDA-Public Use
  Company Number: IT-TEVA-308912ISR

PATIENT
  Sex: Female

DRUGS (2)
  1. AMISULPRIDE [Suspect]
  2. PAROXETINE HCL [Suspect]

REACTIONS (2)
  - BRADYPHRENIA [None]
  - BRADYKINESIA [None]
